FAERS Safety Report 13080773 (Version 1)
Quarter: 2017Q1

REPORT INFORMATION
  Report Type: Spontaneous
  Country: FR (occurrence: FR)
  Receive Date: 20170103
  Receipt Date: 20170103
  Transmission Date: 20170428
  Serious: Yes (Hospitalization)
  Sender: FDA-Public Use
  Company Number: FR-PFIZER INC-2016601942

PATIENT
  Age: 55 Year
  Sex: Male

DRUGS (21)
  1. ETOPOSIDE. [Suspect]
     Active Substance: ETOPOSIDE
     Indication: TESTICULAR SEMINOMA (PURE)
     Dosage: 2200 MG, CYCLIC (800 MG ON DAY 1, 600 ON  DAY2 AND  800 MG ON DAY 3)
     Route: 041
     Dates: start: 20161121, end: 20161123
  2. PRIMPERAN [Suspect]
     Active Substance: METOCLOPRAMIDE HYDROCHLORIDE
     Indication: NAUSEA
     Dosage: UNK
     Route: 048
     Dates: start: 20161129, end: 20161204
  3. KARDEGIC [Concomitant]
     Active Substance: ASPIRIN LYSINE
  4. ESOMEPRAZOLE [Concomitant]
     Active Substance: ESOMEPRAZOLE
  5. SMECTA [Suspect]
     Active Substance: MONTMORILLONITE
     Indication: DIARRHOEA
     Dosage: UNK
     Route: 048
     Dates: start: 20161127, end: 20161204
  6. DIFFU K [Concomitant]
     Active Substance: POTASSIUM CHLORIDE
  7. VANCOMYCINE [Suspect]
     Active Substance: VANCOMYCIN
     Indication: FEBRILE BONE MARROW APLASIA
     Dosage: 2 G, 1X/DAY
     Route: 042
     Dates: start: 20161130, end: 20161202
  8. XANAX [Concomitant]
     Active Substance: ALPRAZOLAM
  9. LOPERAMIDE ARROW [Suspect]
     Active Substance: LOPERAMIDE
     Indication: DIARRHOEA
     Dosage: UNK
     Route: 048
     Dates: start: 20161127, end: 20161204
  10. NIVESTIM [Suspect]
     Active Substance: FILGRASTIM
     Indication: CHEMOTHERAPY CYTOKINE PROPHYLAXIS
     Dosage: 1 DF, 2X/DAY
     Route: 058
     Dates: start: 201611, end: 20161204
  11. TAZOCILLINE [Suspect]
     Active Substance: PIPERACILLIN SODIUM\TAZOBACTAM SODIUM
     Indication: FEBRILE BONE MARROW APLASIA
     Dosage: 4 G, 3X/DAY
     Route: 042
     Dates: start: 20161127, end: 20161204
  12. ONDANSETRON [Suspect]
     Active Substance: ONDANSETRON
     Indication: NAUSEA
     Dosage: 4 MG, 2X/DAY
     Route: 042
     Dates: start: 20161128, end: 20161204
  13. TIORFAN [Suspect]
     Active Substance: RACECADOTRIL
     Indication: DIARRHOEA
     Dosage: UNK
     Route: 048
     Dates: start: 20161129, end: 20161204
  14. BISOPROLOL [Concomitant]
     Active Substance: BISOPROLOL
  15. STILNOX [Concomitant]
     Active Substance: ZOLPIDEM TARTRATE
  16. PHLOROGLUCINOL ARROW [Suspect]
     Active Substance: PHLOROGLUCINOL
     Indication: ABDOMINAL PAIN
     Dosage: 1 DF, 3X/DAY
     Route: 048
     Dates: start: 20161202, end: 20161204
  17. OXYCONTIN [Concomitant]
     Active Substance: OXYCODONE HYDROCHLORIDE
  18. OXYCODONE [Concomitant]
     Active Substance: OXYCODONE
  19. FLUOXETINE [Concomitant]
     Active Substance: FLUOXETINE HYDROCHLORIDE
  20. LAROXYL [Concomitant]
     Active Substance: AMITRIPTYLINE
  21. CARBOPLATIN. [Suspect]
     Active Substance: CARBOPLATIN
     Indication: TESTICULAR SEMINOMA (PURE)
     Dosage: 1480 MG, CYCLIC (470 MG ON DAY 1 AND 2, 540 MG ON DAY 3)
     Route: 041
     Dates: start: 20161121, end: 20161123

REACTIONS (4)
  - Enteritis [None]
  - Acute kidney injury [Recovered/Resolved]
  - Neutropenia [None]
  - Febrile bone marrow aplasia [None]

NARRATIVE: CASE EVENT DATE: 20161203
